FAERS Safety Report 8561151-3 (Version None)
Quarter: 2012Q3

REPORT INFORMATION
  Report Type: 
  Country: None (occurrence: None)
  Receive Date: 20120802
  Receipt Date: 20120724
  Transmission Date: 20120928
  Serious: Yes (Disabling)
  Sender: FDA-Public Use
  Company Number: US-ASTRAZENECA-2012SE52225

PATIENT
  Age: 61 Year
  Sex: Male
  Weight: 86.2 kg

DRUGS (3)
  1. LAMICTAL [Concomitant]
  2. SEROQUEL [Suspect]
     Indication: BIPOLAR DISORDER
     Route: 048
  3. KLONOPIN [Concomitant]

REACTIONS (1)
  - BIPOLAR DISORDER [None]
